FAERS Safety Report 16926406 (Version 1)
Quarter: 2019Q4

REPORT INFORMATION
  Report Type: Spontaneous
  Country: US (occurrence: US)
  Receive Date: 20191016
  Receipt Date: 20191016
  Transmission Date: 20200122
  Serious: Yes (Death)
  Sender: FDA-Public Use
  Company Number: NVSC2019US003113

PATIENT
  Age: 76 Year
  Sex: Female

DRUGS (1)
  1. ENOXAPARIN [Suspect]
     Active Substance: ENOXAPARIN
     Indication: PULMONARY EMBOLISM
     Dosage: 1 MG/KG, Q12H
     Route: 065

REACTIONS (4)
  - Shock haemorrhagic [Fatal]
  - Haematoma [Fatal]
  - Haemoglobin decreased [Fatal]
  - Blood pressure decreased [Fatal]
